FAERS Safety Report 20821282 (Version 1)
Quarter: 2022Q2

REPORT INFORMATION
  Report Type: Spontaneous
  Country: DE (occurrence: DE)
  Receive Date: 20220512
  Receipt Date: 20220512
  Transmission Date: 20220720
  Serious: Yes (Death)
  Sender: FDA-Public Use
  Company Number: DE-ABBVIE-22K-062-4392359-00

PATIENT
  Age: 71 Year
  Sex: Male

DRUGS (1)
  1. VENETOCLAX [Suspect]
     Active Substance: VENETOCLAX
     Indication: Acute myeloid leukaemia
     Route: 048
     Dates: start: 202106

REACTIONS (12)
  - Death [Fatal]
  - Leukocytosis [Unknown]
  - Blood lactate dehydrogenase increased [Unknown]
  - Impaired reasoning [Unknown]
  - Orchitis [Unknown]
  - Gingivitis [Unknown]
  - Serum ferritin increased [Unknown]
  - Anaemia [Unknown]
  - Leukopenia [Unknown]
  - Arthralgia [Unknown]
  - Thrombocytopenia [Unknown]
  - Arthralgia [Recovered/Resolved]

NARRATIVE: CASE EVENT DATE: 20210601
